FAERS Safety Report 6041979-4 (Version None)
Quarter: 2009Q1

REPORT INFORMATION
  Report Type: 
  Country: None (occurrence: None)
  Receive Date: 20090116
  Receipt Date: 20090109
  Transmission Date: 20090719
  Serious: Yes (Other)
  Sender: FDA-Public Use
  Company Number: BR-PFIZER INC-2008070747

PATIENT

DRUGS (1)
  1. CELEBRA [Suspect]
     Indication: TORTICOLLIS
     Route: 048
     Dates: start: 20080701, end: 20080701

REACTIONS (5)
  - GASTROINTESTINAL DISORDER [None]
  - LABYRINTHITIS [None]
  - MIGRAINE [None]
  - RENAL DISORDER [None]
  - VOMITING [None]
